FAERS Safety Report 20649712 (Version 1)
Quarter: 2022Q1

REPORT INFORMATION
  Report Type: Spontaneous
  Country: US (occurrence: None)
  Receive Date: 20220329
  Receipt Date: 20220329
  Transmission Date: 20220423
  Serious: Yes (Hospitalization)
  Sender: FDA-Public Use
  Company Number: None

PATIENT
  Age: 37 Year
  Sex: Female
  Weight: 76.38 kg

DRUGS (20)
  1. PREVYMIS [Suspect]
     Active Substance: LETERMOVIR
     Indication: Acute myelomonocytic leukaemia
     Dosage: FREQUENCY : DAILY;?
     Route: 048
     Dates: start: 202203
  2. ACYCLOVIR [Concomitant]
     Active Substance: ACYCLOVIR
  3. BENZONATATE [Concomitant]
     Active Substance: BENZONATATE
  4. DOCUSATE SODIUM [Concomitant]
     Active Substance: DOCUSATE SODIUM
  5. ENOXAPARIN SODIUM [Concomitant]
     Active Substance: ENOXAPARIN SODIUM
  6. FAMOTIDINE [Concomitant]
     Active Substance: FAMOTIDINE
  7. LORATADINE [Concomitant]
     Active Substance: LORATADINE
  8. MAGNESIUM [Concomitant]
     Active Substance: MAGNESIUM
  9. MEDROXYPROGESTERONE [Concomitant]
     Active Substance: MEDROXYPROGESTERONE
  10. MIRALAX [Concomitant]
     Active Substance: POLYETHYLENE GLYCOL 3350
  11. ONDANSETRON [Concomitant]
     Active Substance: ONDANSETRON
  12. PANTOPRAZOLE SODIUM [Concomitant]
     Active Substance: PANTOPRAZOLE SODIUM
  13. SENNA LAXATIVE [Concomitant]
     Active Substance: SENNOSIDES
  14. SIMETHICONE (DIMETHICONE) [Concomitant]
     Active Substance: DIMETHICONE
  15. SODIUM BICARBONATE [Concomitant]
     Active Substance: SODIUM BICARBONATE
  16. SUCRALFATE [Concomitant]
     Active Substance: SUCRALFATE
  17. TACROLIMUS [Concomitant]
     Active Substance: TACROLIMUS
  18. URSODIOL [Concomitant]
     Active Substance: URSODIOL
  19. VORICONAZOLE [Concomitant]
     Active Substance: VORICONAZOLE
  20. VITAMIN D3 [Concomitant]
     Active Substance: CHOLECALCIFEROL

REACTIONS (2)
  - Asthenia [None]
  - Pyrexia [None]
